FAERS Safety Report 6102184-6 (Version None)
Quarter: 2009Q1

REPORT INFORMATION
  Report Type: 
  Country: None (occurrence: None)
  Receive Date: 20090304
  Receipt Date: 20090220
  Transmission Date: 20090719
  Serious: Yes (Death, Other)
  Sender: FDA-Public Use
  Company Number: NL-WYE-G01973208

PATIENT
  Age: 56 Year
  Sex: Male

DRUGS (2)
  1. EFFEXOR XR [Suspect]
     Indication: DEPRESSION
     Dosage: UNK
     Dates: start: 20070720, end: 20070101
  2. ZOLPIDEM [Suspect]
     Dosage: UNKNOWN

REACTIONS (6)
  - AMNESIA [None]
  - ANGER [None]
  - COMPLETED SUICIDE [None]
  - HOMICIDE [None]
  - PERSONALITY DISORDER [None]
  - POOR QUALITY SLEEP [None]
